FAERS Safety Report 10222691 (Version 1)
Quarter: 2014Q2

REPORT INFORMATION
  Report Type: Spontaneous
  Country: US (occurrence: US)
  Receive Date: 20140606
  Receipt Date: 20140606
  Transmission Date: 20141212
  Serious: No
  Sender: FDA-Public Use
  Company Number: US-GILEAD-2013-0080961

PATIENT
  Sex: Male

DRUGS (1)
  1. TRUVADA [Suspect]
     Indication: PROPHYLAXIS

REACTIONS (4)
  - Somnolence [Unknown]
  - Muscle spasms [Unknown]
  - Headache [Unknown]
  - Dyspepsia [Unknown]
